FAERS Safety Report 4790367-7 (Version None)
Quarter: 2005Q4

REPORT INFORMATION
  Report Type: 
  Country: None (occurrence: None)
  Receive Date: 20051005
  Receipt Date: 20050922
  Transmission Date: 20060501
  Serious: Yes (Disabling)
  Sender: FDA-Public Use
  Company Number: 200212999

PATIENT
  Age: 51 Year
  Sex: Female
  Weight: 48.9885 kg

DRUGS (2)
  1. BOTOX COSMETIC [Suspect]
     Indication: SKIN WRINKLING
     Dosage: 115 UNITS PRM IM
     Route: 030
  2. HAYLAFORM [Concomitant]

REACTIONS (24)
  - CRANIAL NERVE DISORDER [None]
  - DRUG HYPERSENSITIVITY [None]
  - DRUG INEFFECTIVE [None]
  - DYSPEPSIA [None]
  - DYSPHONIA [None]
  - GASTROOESOPHAGEAL REFLUX DISEASE [None]
  - GINGIVAL PAIN [None]
  - GLOSSODYNIA [None]
  - HYPOAESTHESIA [None]
  - HYPOAESTHESIA ORAL [None]
  - INFLUENZA [None]
  - LARYNGEAL OEDEMA [None]
  - LUMBAR RADICULOPATHY [None]
  - MUSCLE STRAIN [None]
  - MUSCLE TIGHTNESS [None]
  - NEURALGIA [None]
  - ORAL DISCOMFORT [None]
  - PALATAL DISORDER [None]
  - PYREXIA [None]
  - ROAD TRAFFIC ACCIDENT [None]
  - SENSATION OF FOREIGN BODY [None]
  - SKIN BURNING SENSATION [None]
  - THROAT IRRITATION [None]
  - UPPER LIMB FRACTURE [None]
